FAERS Safety Report 8614712 (Version 2)
Quarter: 2012Q4

REPORT INFORMATION
  Report Type: Report from Study
  Country: ES (occurrence: ES)
  Receive Date: 20120614
  Receipt Date: 20121227
  Transmission Date: 20130627
  Serious: Yes (Hospitalization)
  Sender: FDA-Public Use
  Company Number: ES-ROCHE-1077303

PATIENT
  Age: 64 Year
  Sex: Male

DRUGS (11)
  1. BEVACIZUMAB [Suspect]
     Indication: METASTATIC RENAL CELL CARCINOMA
     Dosage: last dose prior to SAE was on 20/Nov/2009
     Route: 042
     Dates: start: 20090610, end: 20091201
  2. RAD001 [Suspect]
     Indication: METASTATIC RENAL CELL CARCINOMA
     Dosage: Last dose prior to SAE was on 25/Nov/2009
     Route: 048
     Dates: start: 20090610, end: 20091201
  3. OMEPRAZOL [Concomitant]
  4. PREDNISONE [Concomitant]
  5. CARVEDILOL [Concomitant]
  6. NORVAS [Concomitant]
  7. SEGURIL [Concomitant]
  8. ENALAPRIL [Concomitant]
  9. SPIRIVA [Concomitant]
  10. SYMBICORT [Concomitant]
     Dosage: TURBUHALER
     Route: 065
  11. AMLODIPINE [Concomitant]

REACTIONS (2)
  - Pneumonitis [Recovered/Resolved]
  - Necrotising fasciitis [Recovered/Resolved]
